FAERS Safety Report 8811973 (Version 1)
Quarter: 2012Q4

REPORT INFORMATION
  Report Type: 
  Country: US (occurrence: US)
  Receive Date: 20120927
  Receipt Date: 20120927
  Transmission Date: 20130627
  Serious: No
  Sender: FDA-Public Use
  Company Number: US-009507513-1209USA008790

PATIENT
  Sex: Female

DRUGS (11)
  1. PEGINTRON [Suspect]
     Dosage: 150MCG/0.5ml, qw
     Route: 058
  2. RIBAPAK [Suspect]
     Dosage: UNK
  3. VITAMINS (UNSPECIFIED) [Concomitant]
  4. AVEENO ANTI-ITCH [Concomitant]
  5. VITAMIN E [Concomitant]
     Dosage: 1000 units UNK, UNK
  6. ASCORBIC ACID [Concomitant]
     Dosage: 500 mg, UNK
  7. CALCIUM (UNSPECIFIED) [Concomitant]
     Dosage: 500
  8. OMEGA-3 MARINE TRIGLYCERIDES [Concomitant]
  9. VITAMIN D (UNSPECIFIED) [Concomitant]
     Dosage: 1000 units
  10. OMEPRAZOLE [Concomitant]
     Dosage: 10 mg, UNK
  11. CORTISONE [Concomitant]

REACTIONS (1)
  - Oral herpes [Unknown]
